FAERS Safety Report 9592013 (Version 1)
Quarter: 2013Q4

REPORT INFORMATION
  Report Type: Spontaneous
  Country: US (occurrence: US)
  Receive Date: 20131004
  Receipt Date: 20131004
  Transmission Date: 20140711
  Serious: Yes (Death)
  Sender: FDA-Public Use
  Company Number: US-ROCHE-1284928

PATIENT
  Age: 64 Year
  Sex: Female

DRUGS (4)
  1. ERIVEDGE [Suspect]
     Indication: PRODUCT USED FOR UNKNOWN INDICATION
     Route: 048
     Dates: start: 20121108
  2. NEUPOGEN [Concomitant]
     Route: 065
  3. PAROXETINE [Concomitant]
  4. DRONABINOL [Concomitant]

REACTIONS (1)
  - Death [Fatal]
